FAERS Safety Report 19900133 (Version 2)
Quarter: 2021Q4

REPORT INFORMATION
  Report Type: Spontaneous
  Country: CN (occurrence: CN)
  Receive Date: 20210929
  Receipt Date: 20211005
  Transmission Date: 20220303
  Serious: Yes (Hospitalization)
  Sender: FDA-Public Use
  Company Number: CN-BAYER-2021-210933

PATIENT
  Sex: Female

DRUGS (1)
  1. YASMIN [Suspect]
     Active Substance: DROSPIRENONE\ETHINYL ESTRADIOL
     Indication: Menstrual cycle management
     Route: 048

REACTIONS (11)
  - Insomnia [None]
  - Stress [None]
  - Abnormal withdrawal bleeding [Not Recovered/Not Resolved]
  - Retching [None]
  - Vomiting [None]
  - Depression [None]
  - Blood prolactin increased [None]
  - Mood altered [None]
  - Off label use [None]
  - Labelled drug-food interaction medication error [None]
  - Product dose omission in error [None]

NARRATIVE: CASE EVENT DATE: 20210901
